FAERS Safety Report 13267422 (Version 2)
Quarter: 2017Q2

REPORT INFORMATION
  Report Type: Spontaneous
  Country: US (occurrence: US)
  Receive Date: 20170224
  Receipt Date: 20170612
  Transmission Date: 20170830
  Serious: No
  Sender: FDA-Public Use
  Company Number: US-ASTRAZENECA-2017SE16895

PATIENT
  Age: 733 Month
  Sex: Male

DRUGS (4)
  1. HUMIRA [Suspect]
     Active Substance: ADALIMUMAB
     Indication: PSORIASIS
     Dosage: 40 MILLIGRAMS/0.8 MILLILITRES, 1 IN 2-2
     Route: 058
     Dates: start: 201601, end: 20170104
  2. CRESTOR [Suspect]
     Active Substance: ROSUVASTATIN CALCIUM
     Indication: BLOOD CHOLESTEROL INCREASED
     Route: 048
  3. CRESTOR [Suspect]
     Active Substance: ROSUVASTATIN CALCIUM
     Indication: BLOOD CHOLESTEROL INCREASED
     Route: 048
  4. LEVOTHYROXINE. [Concomitant]
     Active Substance: LEVOTHYROXINE

REACTIONS (7)
  - Blood cholesterol increased [Not Recovered/Not Resolved]
  - Myalgia [Recovered/Resolved]
  - Drug interaction [Unknown]
  - Pain [Not Recovered/Not Resolved]
  - Peripheral swelling [Recovered/Resolved]
  - Joint stiffness [Not Recovered/Not Resolved]
  - Hypoaesthesia [Unknown]

NARRATIVE: CASE EVENT DATE: 201612
